FAERS Safety Report 9979185 (Version 3)
Quarter: 2014Q1

REPORT INFORMATION
  Report Type: Report from Study
  Country: CL (occurrence: CL)
  Receive Date: 20140306
  Receipt Date: 20140328
  Transmission Date: 20141002
  Serious: Yes (Other)
  Sender: FDA-Public Use
  Company Number: CL-ROCHE-1361128

PATIENT
  Age: 48 Year
  Sex: Female

DRUGS (2)
  1. XELODA [Suspect]
     Indication: BREAST CANCER
     Dosage: 14 DAYS PER CYCLE
     Route: 048
     Dates: start: 20130516, end: 20140317
  2. HERCEPTIN [Suspect]
     Indication: BREAST CANCER
     Route: 042
     Dates: start: 20130516, end: 20140317

REACTIONS (4)
  - Convulsion [Recovered/Resolved]
  - Brain oedema [Not Recovered/Not Resolved]
  - Drug ineffective [Unknown]
  - Dizziness [Not Recovered/Not Resolved]
